FAERS Safety Report 21941983 (Version 1)
Quarter: 2023Q1

REPORT INFORMATION
  Report Type: Report from Study
  Country: US (occurrence: US)
  Receive Date: 20230202
  Receipt Date: 20230202
  Transmission Date: 20230417
  Serious: No
  Sender: FDA-Public Use
  Company Number: US-EXELIXIS-CABO-22056163

PATIENT
  Age: 58 Year
  Sex: Male

DRUGS (3)
  1. CABOMETYX [Suspect]
     Active Substance: CABOZANTINIB S-MALATE
     Indication: Hepatocellular carcinoma
     Dosage: 60 MG, QD (3 PILLS OF 20 MG)
     Route: 048
     Dates: start: 20220916, end: 20221012
  2. CABOMETYX [Suspect]
     Active Substance: CABOZANTINIB S-MALATE
     Dosage: 40 MG, QD (2 PILLS OF 20 MG)
     Route: 048
     Dates: start: 20221014
  3. SKYRIZI [Concomitant]
     Active Substance: RISANKIZUMAB-RZAA
     Dosage: UNK

REACTIONS (14)
  - Hypoaesthesia [Not Recovered/Not Resolved]
  - Body temperature decreased [Unknown]
  - Ageusia [Unknown]
  - Feeding disorder [Unknown]
  - Gait inability [Not Recovered/Not Resolved]
  - Ear pain [Not Recovered/Not Resolved]
  - Somnolence [Unknown]
  - Adverse drug reaction [Unknown]
  - Pain [Unknown]
  - Dry mouth [Unknown]
  - Dysphonia [Unknown]
  - Nausea [Not Recovered/Not Resolved]
  - Vomiting [Not Recovered/Not Resolved]
  - Fatigue [Not Recovered/Not Resolved]

NARRATIVE: CASE EVENT DATE: 20220901
